APPROVED DRUG PRODUCT: MINOCYCLINE HYDROCHLORIDE
Active Ingredient: MINOCYCLINE HYDROCHLORIDE
Strength: EQ 100MG BASE **Federal Register determination that product was not discontinued or withdrawn for safety or effectiveness reasons**
Dosage Form/Route: TABLET;ORAL
Application: N050451 | Product #002
Applicant: TRIAX PHARMACEUTICALS LLC
Approved: Aug 10, 1982 | RLD: Yes | RS: No | Type: DISCN